FAERS Safety Report 16775263 (Version 1)
Quarter: 2019Q3

REPORT INFORMATION
  Report Type: Spontaneous
  Country: US (occurrence: US)
  Receive Date: 20190905
  Receipt Date: 20190905
  Transmission Date: 20191005
  Serious: Yes (Disabling)
  Sender: FDA-Public Use
  Company Number: US-AMERICAN REGENT INC-2019001876

PATIENT
  Sex: Male

DRUGS (5)
  1. INJECTAFER [Suspect]
     Active Substance: FERRIC CARBOXYMALTOSE
     Dosage: 4 PER YEAR
     Dates: start: 2017, end: 2017
  2. INJECTAFER [Suspect]
     Active Substance: FERRIC CARBOXYMALTOSE
     Dosage: 4 PER YEAR
     Dates: start: 2018, end: 2018
  3. INJECTAFER [Suspect]
     Active Substance: FERRIC CARBOXYMALTOSE
     Indication: IRON DEFICIENCY ANAEMIA
     Dosage: 4 PER YEAR
     Dates: start: 2014, end: 2014
  4. INJECTAFER [Suspect]
     Active Substance: FERRIC CARBOXYMALTOSE
     Dosage: 4 PER YEAR
     Dates: start: 2016, end: 2016
  5. INJECTAFER [Suspect]
     Active Substance: FERRIC CARBOXYMALTOSE
     Dosage: 4 PER YEAR
     Dates: start: 2015, end: 2015

REACTIONS (13)
  - Fracture [Not Recovered/Not Resolved]
  - Hypophosphataemia [Not Recovered/Not Resolved]
  - Impaired self-care [Not Recovered/Not Resolved]
  - Pain [Not Recovered/Not Resolved]
  - Bone deformity [Not Recovered/Not Resolved]
  - Muscle atrophy [Not Recovered/Not Resolved]
  - Anhedonia [Not Recovered/Not Resolved]
  - Product quality issue [Unknown]
  - Gait disturbance [Not Recovered/Not Resolved]
  - Stress fracture [Not Recovered/Not Resolved]
  - Osteomalacia [Not Recovered/Not Resolved]
  - Emotional distress [Not Recovered/Not Resolved]
  - Anxiety [Not Recovered/Not Resolved]
